FAERS Safety Report 7563080-0 (Version None)
Quarter: 2011Q2

REPORT INFORMATION
  Report Type: 
  Country: None (occurrence: None)
  Receive Date: 20110615
  Receipt Date: 20110606
  Transmission Date: 20111010
  Serious: Yes (Death)
  Sender: FDA-Public Use
  Company Number: UTC-007667

PATIENT
  Age: 50 Year
  Sex: Female
  Weight: 47.7 kg

DRUGS (3)
  1. TYVASO [Suspect]
     Indication: PULMONARY ARTERIAL HYPERTENSION
     Dosage: 216 MCG (54 MCG,4 IN 1 D),INHALATION
     Route: 055
     Dates: start: 20100709
  2. DIURETICS (DIURETICS) [Concomitant]
  3. ADCIRCA [Concomitant]

REACTIONS (1)
  - DEATH [None]
